FAERS Safety Report 4829791-2 (Version None)
Quarter: 2005Q4

REPORT INFORMATION
  Report Type: 
  Country: None (occurrence: None)
  Receive Date: 20051028
  Receipt Date: 20050715
  Transmission Date: 20060501
  Serious: No
  Sender: FDA-Public Use
  Company Number: COT_0141_2005

PATIENT
  Age: 45 Year
  Sex: Female
  Weight: 63 kg

DRUGS (11)
  1. VENTAVIS [Suspect]
     Indication: PULMONARY HYPERTENSION
     Dosage: 5 MCG VARIABLE IH
     Route: 055
     Dates: start: 20050412
  2. VENTAVIS [Suspect]
     Indication: PULMONARY HYPERTENSION
     Dosage: 5 MCG VARIABLE IH
     Route: 055
     Dates: start: 20050412
  3. CELLCEPT [Concomitant]
  4. LASIX [Concomitant]
  5. FAMOTIDINE [Concomitant]
  6. PROGRAF [Concomitant]
  7. KLONOPIN [Concomitant]
  8. PREDNISONE [Concomitant]
  9. ACETAMINOPHEN [Concomitant]
  10. POTASSIUM CHLORIDE [Concomitant]
  11. IMODIUM [Concomitant]

REACTIONS (2)
  - BRONCHITIS [None]
  - COUGH [None]
